FAERS Safety Report 6639857-2 (Version None)
Quarter: 2010Q1

REPORT INFORMATION
  Report Type: 
  Country: None (occurrence: None)
  Receive Date: 20100315
  Receipt Date: 20100302
  Transmission Date: 20100710
  Serious: Yes (Other)
  Sender: FDA-Public Use
  Company Number: 1000012376

PATIENT
  Age: 37 Year
  Sex: Female

DRUGS (2)
  1. ESCITALOPRAM [Suspect]
     Dosage: DOSAGE (ONCE), ORAL
     Route: 048
     Dates: start: 20100302, end: 20100302
  2. ALCOHOL [Suspect]
     Dosage: (ONCE), ORAL
     Route: 048
     Dates: start: 20100302, end: 20100302

REACTIONS (4)
  - ALCOHOL POISONING [None]
  - INTENTIONAL OVERDOSE [None]
  - SUICIDE ATTEMPT [None]
  - UNEVALUABLE EVENT [None]
